FAERS Safety Report 15439547 (Version 1)
Quarter: 2018Q3

REPORT INFORMATION
  Report Type: Report from Study
  Country: US (occurrence: US)
  Receive Date: 20180928
  Receipt Date: 20180928
  Transmission Date: 20181010
  Serious: Yes (Hospitalization, Other)
  Sender: FDA-Public Use
  Company Number: US-GILEAD-2018-0358763

PATIENT
  Age: 75 Year
  Sex: Female

DRUGS (2)
  1. AMBRISENTAN [Suspect]
     Active Substance: AMBRISENTAN
     Indication: PRODUCT USED FOR UNKNOWN INDICATION
     Dosage: 10 MG, QD
     Route: 065
     Dates: start: 20180809
  2. ADCIRCA [Concomitant]
     Active Substance: TADALAFIL

REACTIONS (13)
  - Gait inability [Unknown]
  - Migraine [Unknown]
  - Nasal congestion [Unknown]
  - Back pain [Unknown]
  - Influenza like illness [Unknown]
  - Pleural effusion [Unknown]
  - Pyrexia [Unknown]
  - Headache [Unknown]
  - Pulmonary embolism [Unknown]
  - Movement disorder [Unknown]
  - Dysphagia [Unknown]
  - Insomnia [Unknown]
  - Drug dose omission [Recovered/Resolved]
